FAERS Safety Report 6610573-6 (Version None)
Quarter: 2010Q1

REPORT INFORMATION
  Report Type: 
  Country: None (occurrence: None)
  Receive Date: 20100302
  Receipt Date: 20100218
  Transmission Date: 20100710
  Serious: Yes (Other)
  Sender: FDA-Public Use
  Company Number: US-JNJCH-2010004709

PATIENT
  Age: 5 Year
  Sex: Female
  Weight: 19.1 kg

DRUGS (1)
  1. CHILDREN'S BENADRYL ALLERGY [Suspect]
     Indication: DRUG USE FOR UNKNOWN INDICATION
     Dosage: TEXT:1TSP EVERY FOUR HOURS
     Route: 048

REACTIONS (2)
  - DYSURIA [None]
  - WRONG DRUG ADMINISTERED [None]
